FAERS Safety Report 7222014-9 (Version None)
Quarter: 2011Q1

REPORT INFORMATION
  Report Type: 
  Country: None (occurrence: None)
  Receive Date: 20110112
  Receipt Date: 20110104
  Transmission Date: 20110831
  Serious: Yes (Hospitalization, Other)
  Sender: FDA-Public Use
  Company Number: US-ELI_LILLY_AND_COMPANY-US200909000664

PATIENT
  Age: 75 Year
  Sex: Female

DRUGS (2)
  1. FORTEO [Suspect]
     Indication: OSTEOPOROSIS
     Dosage: UNK, UNK
     Dates: start: 20090901
  2. COUMADIN [Concomitant]

REACTIONS (5)
  - HAEMORRHOIDS [None]
  - NODULE [None]
  - HAEMORRHAGE [None]
  - INFECTION [None]
  - INJECTION SITE ERYTHEMA [None]
